FAERS Safety Report 10516488 (Version 1)
Quarter: 2014Q4

REPORT INFORMATION
  Report Type: Report from Study
  Country: ES (occurrence: ES)
  Receive Date: 20141014
  Receipt Date: 20141014
  Transmission Date: 20150528
  Serious: Yes (Hospitalization, Other)
  Sender: FDA-Public Use
  Company Number: ES-ABBVIE-14K-144-1293096-00

PATIENT
  Age: 57 Year
  Sex: Female
  Weight: 70 kg

DRUGS (2)
  1. HUMIRA [Suspect]
     Active Substance: ADALIMUMAB
     Dosage: WEEK 1 AND LATER: 40 MG EVERY OTHER WEEK
     Route: 065
     Dates: start: 201202
  2. HUMIRA [Suspect]
     Active Substance: ADALIMUMAB
     Indication: PSORIASIS
     Dosage: WEEK 0: 80 MG
     Route: 065
     Dates: start: 20120207, end: 20120207

REACTIONS (3)
  - Metrorrhagia [Unknown]
  - Hormone level abnormal [Unknown]
  - Menopause [Unknown]

NARRATIVE: CASE EVENT DATE: 201408
